FAERS Safety Report 7809909-X (Version None)
Quarter: 2011Q4

REPORT INFORMATION
  Report Type: 
  Country: None (occurrence: None)
  Receive Date: 20111012
  Receipt Date: 20111004
  Transmission Date: 20120403
  Serious: Yes (Hospitalization, Other)
  Sender: FDA-Public Use
  Company Number: KR-ELI_LILLY_AND_COMPANY-KR201109005911

PATIENT
  Age: 62 Year
  Sex: Male

DRUGS (2)
  1. BYETTA [Suspect]
     Dosage: UNK, UNKNOWN
  2. BYETTA [Suspect]
     Indication: TYPE 2 DIABETES MELLITUS
     Dosage: 5 UG, BID
     Route: 058
     Dates: start: 20110425, end: 20110919

REACTIONS (1)
  - APPENDICITIS [None]
